FAERS Safety Report 24190922 (Version 1)
Quarter: 2024Q3

REPORT INFORMATION
  Report Type: Report from Study
  Country: US (occurrence: None)
  Receive Date: 20240808
  Receipt Date: 20240808
  Transmission Date: 20241017
  Serious: Yes (Hospitalization, Other)
  Sender: ASTRAZENECA
  Company Number: 2022A105345

PATIENT
  Age: 19033 Day
  Sex: Male

DRUGS (1)
  1. TAGRISSO [Suspect]
     Active Substance: OSIMERTINIB
     Route: 048
     Dates: start: 20220216

REACTIONS (3)
  - Cerebrovascular accident [Unknown]
  - Dry skin [Unknown]
  - Dysphagia [Unknown]

NARRATIVE: CASE EVENT DATE: 20220224
